FAERS Safety Report 8234518-0 (Version None)
Quarter: 2012Q1

REPORT INFORMATION
  Report Type: 
  Country: None (occurrence: None)
  Receive Date: 20120326
  Receipt Date: 20120312
  Transmission Date: 20120608
  Serious: Yes (Other)
  Sender: FDA-Public Use
  Company Number: US-ROCHE-1022835

PATIENT
  Sex: Female
  Weight: 64.468 kg

DRUGS (1)
  1. ACCUTANE [Suspect]
     Indication: ACNE
     Dates: start: 19840201, end: 19890101

REACTIONS (5)
  - BIPOLAR I DISORDER [None]
  - RENAL DISORDER [None]
  - IRRITABLE BOWEL SYNDROME [None]
  - DEPRESSION [None]
  - GASTRIC DISORDER [None]
